FAERS Safety Report 7306643-X (Version None)
Quarter: 2011Q1

REPORT INFORMATION
  Report Type: 
  Country: None (occurrence: None)
  Receive Date: 20110209
  Receipt Date: 20110126
  Transmission Date: 20110831
  Serious: Yes (Hospitalization, Other)
  Sender: FDA-Public Use
  Company Number: DSJ-2011-01895

PATIENT
  Age: 76 Year
  Sex: Male

DRUGS (5)
  1. HYDROCHLOROTHIAZIDE [Suspect]
     Indication: HYPERTENSION
     Dosage: 25MG
     Dates: start: 20090101
  2. TICLOPIDINE/NIMODIPINE/FAMOTIDINE [Suspect]
     Indication: CEREBROVASCULAR ACCIDENT
     Dosage: 200/45/20/3MG
     Dates: start: 20090101
  3. ASPIRIN [Concomitant]
  4. AMLODIPINE BESYLATE AND OLMESARTAN MEDOXOMIL [Suspect]
     Indication: HYPERTENSION
     Dosage: 40/10 MG (1 IN 1 D),PER ORAL
     Route: 048
     Dates: start: 20090501
  5. INSULIN [Concomitant]

REACTIONS (5)
  - FALL [None]
  - FEMUR FRACTURE [None]
  - CEREBROVASCULAR ACCIDENT [None]
  - OEDEMA PERIPHERAL [None]
  - DRUG INEFFECTIVE [None]
